FAERS Safety Report 7765712-0 (Version None)
Quarter: 2011Q3

REPORT INFORMATION
  Report Type: 
  Country: None (occurrence: None)
  Receive Date: 20110921
  Receipt Date: 20110914
  Transmission Date: 20111222
  Serious: Yes (Hospitalization)
  Sender: FDA-Public Use
  Company Number: GXBR2011US04727

PATIENT
  Sex: Male
  Weight: 47.27 kg

DRUGS (2)
  1. OMNITROPE [Suspect]
     Indication: GROWTH RETARDATION
     Dosage: 2.4 MG, 6 DAYS A WEEK
     Dates: start: 20110825
  2. OMNITROPE [Suspect]

REACTIONS (3)
  - LUNG INFECTION [None]
  - ASTHMA [None]
  - STAPHYLOCOCCAL INFECTION [None]
